FAERS Safety Report 14373466 (Version 1)
Quarter: 2018Q1

REPORT INFORMATION
  Report Type: Spontaneous
  Country: JP (occurrence: JP)
  Receive Date: 20180110
  Receipt Date: 20180110
  Transmission Date: 20180509
  Serious: Yes (Death, Other)
  Sender: FDA-Public Use
  Company Number: JP-ELI_LILLY_AND_COMPANY-JP201606005668

PATIENT
  Age: 73 Year
  Sex: Female

DRUGS (2)
  1. CISPLATIN. [Concomitant]
     Active Substance: CISPLATIN
     Indication: URETERIC CANCER RECURRENT
     Dosage: 70 MG/M2, OTHER
  2. GEMZAR [Suspect]
     Active Substance: GEMCITABINE HYDROCHLORIDE
     Indication: URETERIC CANCER RECURRENT
     Dosage: 1000 MG/M2, OTHER
     Route: 042

REACTIONS (3)
  - Interstitial lung disease [Fatal]
  - Drug ineffective [Fatal]
  - Pulmonary toxicity [Fatal]
